FAERS Safety Report 8770721 (Version 1)
Quarter: 2012Q4

REPORT INFORMATION
  Report Type: Report from Study
  Country: GT (occurrence: GT)
  Receive Date: 20120907
  Receipt Date: 20120907
  Transmission Date: 20130627
  Serious: Yes (Death, Hospitalization)
  Sender: FDA-Public Use
  Company Number: GT-ROCHE-CID000000001986362

PATIENT
  Age: 58 Year
  Sex: Female
  Weight: 70 kg

DRUGS (3)
  1. ADO-TRASTUZUMAB EMTANSINE [Suspect]
     Indication: BREAST CANCER
     Dosage: Date of last dose:20/MAR/2012, 3.6 MG/KG at the rate of 252 mg
     Route: 042
     Dates: start: 20110707
  2. SODIUM CHLORIDE [Concomitant]
     Route: 065
     Dates: start: 20120324, end: 20120326
  3. PERTUZUMAB [Suspect]
     Indication: BREAST CANCER
     Dosage: Date of last dose:20/MAR/2012
     Route: 042
     Dates: start: 20110707

REACTIONS (1)
  - Upper gastrointestinal haemorrhage [Fatal]
